APPROVED DRUG PRODUCT: PRECEDEX
Active Ingredient: DEXMEDETOMIDINE HYDROCHLORIDE
Strength: EQ 1MG BASE/250ML (EQ 4MCG BASE/ML)
Dosage Form/Route: INJECTABLE;INJECTION
Application: N021038 | Product #005 | TE Code: AP
Applicant: HOSPIRA INC
Approved: Jan 31, 2020 | RLD: Yes | RS: Yes | Type: RX